FAERS Safety Report 9612591 (Version 2)
Quarter: 2013Q4

REPORT INFORMATION
  Report Type: Spontaneous
  Country: JP (occurrence: JP)
  Receive Date: 20131010
  Receipt Date: 20131010
  Transmission Date: 20140711
  Serious: Yes (Death, Hospitalization, Other)
  Sender: FDA-Public Use
  Company Number: JP-PFIZER INC-2013239554

PATIENT
  Age: 75 Year
  Sex: Male

DRUGS (3)
  1. ZYVOX [Suspect]
     Dosage: 1200 MG DAILY
     Route: 042
  2. MINOMYCIN [Concomitant]
     Dosage: UNK
     Route: 042
  3. VANCOMYCIN [Concomitant]

REACTIONS (3)
  - Systemic candida [Fatal]
  - Thrombocytopenia [Recovered/Resolved]
  - Disseminated intravascular coagulation [Unknown]
